FAERS Safety Report 15193243 (Version 1)
Quarter: 2018Q3

REPORT INFORMATION
  Report Type: Spontaneous
  Country: PT (occurrence: PT)
  Receive Date: 20180725
  Receipt Date: 20180725
  Transmission Date: 20181010
  Serious: Yes (Disabling)
  Sender: FDA-Public Use
  Company Number: PT-009507513-1807PRT008389

PATIENT
  Age: 71 Year
  Weight: 60 kg

DRUGS (1)
  1. ATOZET [Suspect]
     Active Substance: ATORVASTATIN CALCIUM\EZETIMIBE
     Indication: BLOOD CHOLESTEROL INCREASED
     Dosage: 1
     Route: 048
     Dates: start: 20180601, end: 20180605

REACTIONS (2)
  - Malaise [Recovered/Resolved]
  - Pain [Recovered/Resolved]

NARRATIVE: CASE EVENT DATE: 20180601
